FAERS Safety Report 23237914 (Version 31)
Quarter: 2024Q4

REPORT INFORMATION
  Report Type: Report from Study
  Country: AT (occurrence: AT)
  Receive Date: 20231128
  Receipt Date: 20241223
  Transmission Date: 20250115
  Serious: Yes (Other)
  Sender: ABBVIE
  Company Number: AT-ABBVIE-4224465

PATIENT
  Age: 78 Year
  Sex: Male
  Weight: 98 kg

DRUGS (147)
  1. VENETOCLAX [Suspect]
     Active Substance: VENETOCLAX
     Indication: Acute myeloid leukaemia
     Dosage: FREQUENCY TEXT: RAMP-UP PHASE, NON HEMATOLOGIC AE/SAE
     Route: 048
     Dates: start: 20240430, end: 20240520
  2. VENETOCLAX [Suspect]
     Active Substance: VENETOCLAX
     Indication: Acute myeloid leukaemia
     Dosage: FREQUENCY TEXT: RAMP-UP PHASE?UPDOSING
     Route: 048
     Dates: start: 20221014, end: 20221014
  3. VENETOCLAX [Suspect]
     Active Substance: VENETOCLAX
     Indication: Acute myeloid leukaemia
     Dosage: FREQUENCY TEXT: NON HEMATOLOGIC AE/SAE
     Route: 048
     Dates: start: 20240603, end: 20240623
  4. VENETOCLAX [Suspect]
     Active Substance: VENETOCLAX
     Indication: Acute myeloid leukaemia
     Dosage: FREQUENCY TEXT: NON HEMATOLOGIC AE / SAE
     Route: 048
     Dates: start: 20221019, end: 20221109
  5. VENETOCLAX [Suspect]
     Active Substance: VENETOCLAX
     Indication: Acute myeloid leukaemia
     Dosage: FREQUENCY TEXT: RAMP-UP PHASE?UPDOSING
     Route: 048
     Dates: start: 20221018, end: 20221018
  6. VENETOCLAX [Suspect]
     Active Substance: VENETOCLAX
     Indication: Acute myeloid leukaemia
     Dosage: UPDOSING
     Route: 048
     Dates: start: 20221015, end: 20221017
  7. VENETOCLAX [Suspect]
     Active Substance: VENETOCLAX
     Indication: Acute myeloid leukaemia
     Dosage: FREQUENCY TEXT: NON HEMATOLOGIC AE / SAE
     Route: 048
     Dates: start: 20230104, end: 20240131
  8. VENETOCLAX [Suspect]
     Active Substance: VENETOCLAX
     Indication: Acute myeloid leukaemia
     Dosage: FREQUENCY TEXT: NON HEMATOLOGIC AE / SAE
     Route: 048
     Dates: start: 20230301, end: 20230328
  9. VENETOCLAX [Suspect]
     Active Substance: VENETOCLAX
     Indication: Acute myeloid leukaemia
     Dosage: FREQUENCY TEXT: NON HEMATOLOGIC AE / SAE
     Route: 048
     Dates: start: 20230329, end: 20230425
  10. VENETOCLAX [Suspect]
     Active Substance: VENETOCLAX
     Indication: Acute myeloid leukaemia
     Dosage: FREQUENCY TEXT: NON HEMATOLOGIC AE / SAE
     Route: 048
     Dates: start: 20230530, end: 20230626
  11. VENETOCLAX [Suspect]
     Active Substance: VENETOCLAX
     Indication: Acute myeloid leukaemia
     Dosage: FREQUENCY TEXT: NON HEMATOLOGIC AE / SAE
     Route: 048
     Dates: start: 20230426, end: 20230529
  12. VENETOCLAX [Suspect]
     Active Substance: VENETOCLAX
     Indication: Acute myeloid leukaemia
     Dosage: FREQUENCY TEXT: NON HEMATOLOGIC AE / SAE
     Route: 048
     Dates: start: 20230627, end: 20230717
  13. VENETOCLAX [Suspect]
     Active Substance: VENETOCLAX
     Indication: Acute myeloid leukaemia
     Dosage: FREQUENCY TEXT: NON HEMATOLOGIC AE / SAE
     Route: 048
     Dates: start: 20230725, end: 20230821
  14. VENETOCLAX [Suspect]
     Active Substance: VENETOCLAX
     Indication: Acute myeloid leukaemia
     Dosage: FREQUENCY TEXT: NON HEMATOLOGIC AE/SAE
     Route: 048
     Dates: start: 20240109, end: 20240205
  15. VENETOCLAX [Suspect]
     Active Substance: VENETOCLAX
     Indication: Acute myeloid leukaemia
     Dosage: HEMATOLOGIC AE/SAE
     Route: 048
     Dates: start: 20230822, end: 20230918
  16. VENETOCLAX [Suspect]
     Active Substance: VENETOCLAX
     Indication: Acute myeloid leukaemia
     Dosage: HEMATOLOGIC AE/SAE
     Route: 048
     Dates: start: 20230919, end: 20231016
  17. VENETOCLAX [Suspect]
     Active Substance: VENETOCLAX
     Indication: Acute myeloid leukaemia
     Dosage: HEMATOLOGIC AE/SAE
     Route: 048
     Dates: start: 20231017, end: 20231113
  18. VENETOCLAX [Suspect]
     Active Substance: VENETOCLAX
     Indication: Acute myeloid leukaemia
     Dosage: HEMATOLOGIC AE/SAE
     Route: 048
     Dates: start: 20231114, end: 20231211
  19. VENETOCLAX [Suspect]
     Active Substance: VENETOCLAX
     Indication: Acute myeloid leukaemia
     Dosage: FREQUENCY TEXT: NON HEMATOLOGIC AE/SAE
     Route: 048
     Dates: start: 20231212, end: 20240108
  20. VENETOCLAX [Suspect]
     Active Substance: VENETOCLAX
     Indication: Acute myeloid leukaemia
     Dosage: FREQUENCY TEXT: NON HEMATOLOGIC AE/SAE
     Route: 048
     Dates: start: 20240305, end: 20240401
  21. VENETOCLAX [Suspect]
     Active Substance: VENETOCLAX
     Indication: Acute myeloid leukaemia
     Dosage: FREQUENCY TEXT: NON HEMATOLOGIC AE/SAE
     Route: 048
     Dates: start: 20240402, end: 20240422
  22. VENETOCLAX [Suspect]
     Active Substance: VENETOCLAX
     Indication: Acute myeloid leukaemia
     Dosage: MG (DOSE NOT SPECIFIED); FREQUENCY TEXT: NON HEMATOLOGIC AE/SAE
     Route: 048
     Dates: start: 20240206, end: 20240304
  23. VENETOCLAX [Suspect]
     Active Substance: VENETOCLAX
     Indication: Acute myeloid leukaemia
     Dosage: FREQUENCY TEXT: NON HEMATOLOGIC AE / SAE
     Route: 048
     Dates: start: 20230201, end: 20230228
  24. VENETOCLAX [Suspect]
     Active Substance: VENETOCLAX
     Indication: Acute myeloid leukaemia
     Dosage: FREQUENCY TEXT: NON HEMATOLOGIC AE / SAE
     Route: 048
     Dates: start: 20221110, end: 20221206
  25. VENETOCLAX [Suspect]
     Active Substance: VENETOCLAX
     Indication: Acute myeloid leukaemia
     Dosage: FREQUENCY TEXT: NON HEMATOLOGIC AE / SAE
     Route: 048
     Dates: start: 20221207, end: 20230103
  26. VENETOCLAX [Suspect]
     Active Substance: VENETOCLAX
     Indication: Acute myeloid leukaemia
     Dosage: FREQUENCY TEXT: NON HEMATOLOGIC AE/SAE
     Route: 048
     Dates: start: 20240708, end: 20240728
  27. VENETOCLAX [Suspect]
     Active Substance: VENETOCLAX
     Indication: Acute myeloid leukaemia
     Dosage: FREQUENCY TEXT: NON HEMATOLOGIC AE / SAE
     Route: 048
     Dates: start: 20240805, end: 20240825
  28. VENETOCLAX [Suspect]
     Active Substance: VENETOCLAX
     Indication: Acute myeloid leukaemia
     Dosage: FREQUENCY TEXT: NON HEMATOLOGIC AE / SAE
     Route: 048
     Dates: start: 20240902, end: 20240915
  29. VENETOCLAX [Suspect]
     Active Substance: VENETOCLAX
     Indication: Acute myeloid leukaemia
     Dosage: FREQUENCY TEXT: NON HEMATOLOGIC AE/SAE
     Route: 048
     Dates: start: 20241028, end: 20241110
  30. VENETOCLAX [Suspect]
     Active Substance: VENETOCLAX
     Indication: Acute myeloid leukaemia
     Dosage: NON HEMATOLOGIC AE/SAE
     Route: 048
     Dates: start: 20241125, end: 20241209
  31. VENETOCLAX [Suspect]
     Active Substance: VENETOCLAX
     Indication: Acute myeloid leukaemia
     Dosage: UPDOSING 0 MG
     Route: 048
     Dates: start: 20221013, end: 20221013
  32. VENETOCLAX [Suspect]
     Active Substance: VENETOCLAX
     Indication: Acute myeloid leukaemia
     Dosage: FREQUENCY TEXT: HEMATOLOGIC AE / SAE 0 MG
     Route: 048
     Dates: start: 20230718, end: 20230724
  33. VENETOCLAX [Suspect]
     Active Substance: VENETOCLAX
     Indication: Acute myeloid leukaemia
     Dosage: FREQUENCY TEXT: HEMATOLOGIC AE / SAE 0 MG
     Route: 048
     Dates: start: 20240521, end: 20240602
  34. VENETOCLAX [Suspect]
     Active Substance: VENETOCLAX
     Indication: Acute myeloid leukaemia
     Dosage: FREQUENCY TEXT: HEMATOLOGIC AE / SAE 0 MG
     Route: 048
     Dates: start: 20240423, end: 20240429
  35. VENETOCLAX [Suspect]
     Active Substance: VENETOCLAX
     Indication: Acute myeloid leukaemia
     Dosage: FREQUENCY TEXT: HEMATOLOGIC AE / SAE 0 MG
     Route: 048
     Dates: start: 20240624, end: 20240707
  36. VENETOCLAX [Suspect]
     Active Substance: VENETOCLAX
     Indication: Acute myeloid leukaemia
     Dosage: FREQUENCY TEXT: NON HEMATOLOGIC AE/SAE, DOSING 0 MG
     Route: 048
     Dates: start: 20240729, end: 20240804
  37. VENETOCLAX [Suspect]
     Active Substance: VENETOCLAX
     Indication: Acute myeloid leukaemia
     Dosage: FREQUENCY TEXT: NON HEMATOLOGIC AE/SAE, DOSING 0 MG
     Route: 048
     Dates: start: 20240826, end: 20240901
  38. VENETOCLAX [Suspect]
     Active Substance: VENETOCLAX
     Indication: Acute myeloid leukaemia
     Dosage: FREQUENCY TEXT: NON HEMATOLOGIC AE/SAE, DOSING 0 MG
     Route: 048
     Dates: start: 20240916, end: 20240929
  39. VENETOCLAX [Suspect]
     Active Substance: VENETOCLAX
     Indication: Acute myeloid leukaemia
     Dosage: FREQUENCY TEXT: NON HEMATOLOGIC AE/SAE, DOSING 0 MG
     Route: 048
     Dates: start: 20241014, end: 20241027
  40. VENETOCLAX [Suspect]
     Active Substance: VENETOCLAX
     Indication: Acute myeloid leukaemia
     Dosage: FREQUENCY TEXT: NON HEMATOLOGIC AE/SAE, DOSING 0 MG
     Route: 048
     Dates: start: 20241111, end: 20241124
  41. VENETOCLAX [Suspect]
     Active Substance: VENETOCLAX
     Indication: Acute myeloid leukaemia
     Route: 048
     Dates: start: 20241210
  42. VALACYCLOVIR HYDROCHLORIDE [Concomitant]
     Active Substance: VALACYCLOVIR HYDROCHLORIDE
     Indication: Product used for unknown indication
     Route: 048
     Dates: start: 20221013
  43. FLUPREDNIDENE ACETATE [Concomitant]
     Active Substance: FLUPREDNIDENE ACETATE
     Indication: Product used for unknown indication
     Dosage: DOSAGE: {DF}
     Route: 062
     Dates: start: 20240607
  44. FLUPREDNIDENE ACETATE [Concomitant]
     Active Substance: FLUPREDNIDENE ACETATE
     Indication: Product used for unknown indication
     Route: 062
     Dates: start: 20240607
  45. FLUPREDNIDENE ACETATE [Concomitant]
     Active Substance: FLUPREDNIDENE ACETATE
     Indication: Product used for unknown indication
     Dosage: AS REQUIRED
     Route: 062
     Dates: start: 20240607
  46. PANTOPRAZOLE SODIUM [Concomitant]
     Active Substance: PANTOPRAZOLE SODIUM
     Indication: Product used for unknown indication
     Route: 048
     Dates: start: 20221013
  47. AMPHOTERICIN B [Concomitant]
     Active Substance: AMPHOTERICIN B
     Indication: Product used for unknown indication
     Dosage: TIME INTERVAL: 0.33333333 DAYS
     Route: 048
     Dates: start: 20221013
  48. ALLOPURINOL [Concomitant]
     Active Substance: ALLOPURINOL
     Indication: Product used for unknown indication
     Route: 048
     Dates: start: 20221013, end: 20230501
  49. ALLOPURINOL [Concomitant]
     Active Substance: ALLOPURINOL
     Indication: Product used for unknown indication
     Route: 048
     Dates: start: 20230503
  50. DEXPANTHENOL [Concomitant]
     Active Substance: DEXPANTHENOL
     Indication: Product used for unknown indication
     Dosage: TIME INTERVAL: 0.33333333 DAYS
     Route: 062
     Dates: start: 20221013
  51. ONDANSETRON [Concomitant]
     Active Substance: ONDANSETRON
     Indication: Product used for unknown indication
     Dosage: TIME INTERVAL: AS NECESSARY
     Route: 065
     Dates: start: 20230104
  52. ONDANSETRON [Concomitant]
     Active Substance: ONDANSETRON
     Indication: Product used for unknown indication
     Dosage: TIME INTERVAL: AS NECESSARY
     Route: 065
     Dates: start: 20221013, end: 20221020
  53. AZACITIDINE [Concomitant]
     Active Substance: AZACITIDINE
     Indication: Product used for unknown indication
     Dosage: FREQUENCY TEXT: STANDARD DOSE
     Dates: start: 20230201, end: 20230208
  54. AZACITIDINE [Concomitant]
     Active Substance: AZACITIDINE
     Indication: Product used for unknown indication
     Dates: start: 20230919, end: 20230926
  55. AZACITIDINE [Concomitant]
     Active Substance: AZACITIDINE
     Indication: Product used for unknown indication
     Dates: start: 20230530, end: 20230606
  56. AZACITIDINE [Concomitant]
     Active Substance: AZACITIDINE
     Indication: Product used for unknown indication
     Dates: start: 20231017, end: 20231024
  57. AZACITIDINE [Concomitant]
     Active Substance: AZACITIDINE
     Indication: Product used for unknown indication
     Dates: start: 20230426, end: 20230504
  58. AZACITIDINE [Concomitant]
     Active Substance: AZACITIDINE
     Indication: Product used for unknown indication
     Dates: start: 20231114, end: 20231120
  59. AZACITIDINE [Concomitant]
     Active Substance: AZACITIDINE
     Indication: Product used for unknown indication
     Dates: start: 20230329, end: 20230405
  60. AZACITIDINE [Concomitant]
     Active Substance: AZACITIDINE
     Indication: Product used for unknown indication
     Dates: start: 20230301, end: 20230308
  61. AZACITIDINE [Concomitant]
     Active Substance: AZACITIDINE
     Indication: Product used for unknown indication
     Dosage: FREQUENCY TEXT: STANDARD DOSE
     Dates: start: 20221207, end: 20221214
  62. AZACITIDINE [Concomitant]
     Active Substance: AZACITIDINE
     Indication: Product used for unknown indication
     Dates: start: 20230627, end: 20230704
  63. AZACITIDINE [Concomitant]
     Active Substance: AZACITIDINE
     Indication: Product used for unknown indication
     Dates: start: 20231212, end: 20231219
  64. AZACITIDINE [Concomitant]
     Active Substance: AZACITIDINE
     Indication: Product used for unknown indication
     Dates: start: 20240305, end: 20240312
  65. AZACITIDINE [Concomitant]
     Active Substance: AZACITIDINE
     Indication: Product used for unknown indication
     Dates: start: 20240206, end: 20240213
  66. AZACITIDINE [Concomitant]
     Active Substance: AZACITIDINE
     Indication: Product used for unknown indication
     Dosage: FREQUENCY TEXT: STANDARD DOSE
     Dates: start: 20221110, end: 20221117
  67. AZACITIDINE [Concomitant]
     Active Substance: AZACITIDINE
     Indication: Product used for unknown indication
     Dates: start: 20230822, end: 20230829
  68. AZACITIDINE [Concomitant]
     Active Substance: AZACITIDINE
     Indication: Product used for unknown indication
     Dosage: FREQUENCY TEXT: STANDARD DOSE
     Dates: start: 20230104, end: 20230112
  69. AZACITIDINE [Concomitant]
     Active Substance: AZACITIDINE
     Indication: Product used for unknown indication
     Dosage: FREQUENCY TEXT: HEMATOLOGIC AE/SAE
     Dates: start: 20230725, end: 20230801
  70. AZACITIDINE [Concomitant]
     Active Substance: AZACITIDINE
     Indication: Product used for unknown indication
     Dates: start: 20240109, end: 20240116
  71. AZACITIDINE [Concomitant]
     Active Substance: AZACITIDINE
     Indication: Product used for unknown indication
     Dosage: FREQUENCY TEXT: HEMATOLOGIC AE/SAE
     Dates: start: 20240402, end: 20240409
  72. AZACITIDINE [Concomitant]
     Active Substance: AZACITIDINE
     Indication: Product used for unknown indication
     Dosage: FREQUENCY TEXT: HEMATOLOGIC AE/SAE
     Dates: start: 20240430, end: 20240507
  73. AZACITIDINE [Concomitant]
     Active Substance: AZACITIDINE
     Indication: Product used for unknown indication
     Dosage: FREQUENCY TEXT: HEMATOLOGIC AE/SAE
     Dates: start: 20240603, end: 20240610
  74. AZACITIDINE [Concomitant]
     Active Substance: AZACITIDINE
     Indication: Product used for unknown indication
     Dosage: FREQUENCY TEXT: HEMATOLOGIC AE/SAE
     Dates: start: 20240708, end: 20240715
  75. AZACITIDINE [Concomitant]
     Active Substance: AZACITIDINE
     Indication: Product used for unknown indication
     Dosage: FREQUENCY TEXT: HEMATOLOGIC AE/SAE
     Dates: start: 20240805, end: 20240809
  76. AZACITIDINE [Concomitant]
     Active Substance: AZACITIDINE
     Indication: Product used for unknown indication
     Dosage: HEMATOLOGIC AE / SAE
     Dates: start: 20240902, end: 20240909
  77. AZACITIDINE [Concomitant]
     Active Substance: AZACITIDINE
     Indication: Product used for unknown indication
     Dosage: HEMATOLOGIC AE / SAE
     Dates: start: 20240930, end: 20241007
  78. AZACITIDINE [Concomitant]
     Active Substance: AZACITIDINE
     Indication: Product used for unknown indication
     Dosage: FREQUENCY TEXT: HEMATOLOGIC AE/SAE
     Dates: start: 20241028, end: 20241101
  79. AZACITIDINE [Concomitant]
     Active Substance: AZACITIDINE
     Indication: Product used for unknown indication
     Dates: start: 20221013, end: 20221020
  80. AZACITIDINE [Concomitant]
     Active Substance: AZACITIDINE
     Indication: Product used for unknown indication
     Dosage: FREQUENCY TEXT: HEMATOLOGICAL AE / SAE
     Dates: start: 20241125
  81. ACETAMINOPHEN [Concomitant]
     Active Substance: ACETAMINOPHEN
     Indication: Product used for unknown indication
     Dosage: TIME INTERVAL: AS NECESSARY
     Route: 048
     Dates: start: 20230202
  82. UNASYN [Concomitant]
     Active Substance: AMPICILLIN SODIUM\SULBACTAM SODIUM
     Indication: Product used for unknown indication
     Route: 042
     Dates: start: 20230208, end: 20230208
  83. Lidaprim [Concomitant]
     Indication: Product used for unknown indication
     Dosage: 800/160MG
     Route: 048
     Dates: start: 20221014
  84. ENOXAPARIN SODIUM [Concomitant]
     Active Substance: ENOXAPARIN SODIUM
     Indication: Product used for unknown indication
     Dosage: UNIT DOSE 4000 IU
     Route: 058
     Dates: start: 20221207, end: 20221213
  85. ENOXAPARIN SODIUM [Concomitant]
     Active Substance: ENOXAPARIN SODIUM
     Indication: Product used for unknown indication
     Dosage: UNIT DOSE 4000 IU
     Route: 058
     Dates: start: 20221013, end: 20221019
  86. ENOXAPARIN SODIUM [Concomitant]
     Active Substance: ENOXAPARIN SODIUM
     Indication: Product used for unknown indication
     Dosage: UNIT DOSE 4000 IU
     Route: 058
     Dates: start: 20230329, end: 20230405
  87. ENOXAPARIN SODIUM [Concomitant]
     Active Substance: ENOXAPARIN SODIUM
     Indication: Product used for unknown indication
     Dosage: UNIT DOSE 4000 IU
     Route: 058
     Dates: start: 20230208, end: 20230217
  88. ENOXAPARIN SODIUM [Concomitant]
     Active Substance: ENOXAPARIN SODIUM
     Indication: Product used for unknown indication
     Dosage: UNIT DOSE 4000 IU
     Route: 058
     Dates: start: 20230530, end: 20230606
  89. ENOXAPARIN SODIUM [Concomitant]
     Active Substance: ENOXAPARIN SODIUM
     Indication: Product used for unknown indication
     Dosage: UNIT DOSE 4000 IU
     Route: 058
     Dates: start: 20231114, end: 20231121
  90. ENOXAPARIN SODIUM [Concomitant]
     Active Substance: ENOXAPARIN SODIUM
     Indication: Product used for unknown indication
     Dosage: UNIT DOSE 4000 IU
     Route: 058
     Dates: start: 20230822, end: 20230829
  91. ENOXAPARIN SODIUM [Concomitant]
     Active Substance: ENOXAPARIN SODIUM
     Indication: Product used for unknown indication
     Dosage: UNIT DOSE 4000 IU
     Route: 058
     Dates: start: 20230426, end: 20230429
  92. ENOXAPARIN SODIUM [Concomitant]
     Active Substance: ENOXAPARIN SODIUM
     Indication: Product used for unknown indication
     Dosage: UNIT DOSE 4000 IU
     Route: 058
     Dates: start: 20230502, end: 20230504
  93. ENOXAPARIN SODIUM [Concomitant]
     Active Substance: ENOXAPARIN SODIUM
     Indication: Product used for unknown indication
     Dosage: UNIT DOSE 4000 IU
     Route: 058
     Dates: start: 20231212, end: 20231219
  94. ENOXAPARIN SODIUM [Concomitant]
     Active Substance: ENOXAPARIN SODIUM
     Indication: Product used for unknown indication
     Dosage: UNIT DOSE 4000 IU
     Route: 058
     Dates: start: 20221110, end: 20221116
  95. CANDESARTAN CILEXETIL [Concomitant]
     Active Substance: CANDESARTAN CILEXETIL
     Indication: Product used for unknown indication
     Dosage: 1612.5MG
     Route: 048
     Dates: start: 20231219, end: 20240212
  96. CANDESARTAN CILEXETIL [Concomitant]
     Active Substance: CANDESARTAN CILEXETIL
     Indication: Product used for unknown indication
     Dosage: 16/12,5 MG
     Route: 048
     Dates: end: 20221213
  97. CANDESARTAN CILEXETIL [Concomitant]
     Active Substance: CANDESARTAN CILEXETIL
     Indication: Product used for unknown indication
     Dosage: 8/6.25 MG
     Route: 048
     Dates: start: 20221214, end: 20230110
  98. DIPYRONE [Concomitant]
     Active Substance: DIPYRONE
     Indication: Product used for unknown indication
     Dosage: TIME INTERVAL: AS NECESSARY
     Route: 048
     Dates: start: 20230104
  99. Oleovit [Concomitant]
     Indication: Product used for unknown indication
     Dosage: 1.1 ML
     Route: 048
     Dates: start: 20230104
  100. CEOLAT [Concomitant]
     Indication: Product used for unknown indication
     Dosage: TIME INTERVAL: AS NECESSARY
     Route: 048
     Dates: start: 20230303
  101. LEMOCIN [Concomitant]
     Indication: Product used for unknown indication
     Dosage: TIME INTERVAL: AS NECESSARY: UNIT DOSE 3 IU
     Route: 048
     Dates: start: 20230107, end: 20230107
  102. GRANULOCYTE COLONY-STIMULATING FACTOR NOS [Concomitant]
     Active Substance: GRANULOCYTE COLONY-STIMULATING FACTOR NOS
     Indication: Product used for unknown indication
     Dates: start: 20231114
  103. GRANULOCYTE COLONY-STIMULATING FACTOR NOS [Concomitant]
     Active Substance: GRANULOCYTE COLONY-STIMULATING FACTOR NOS
     Indication: Product used for unknown indication
     Dosage: UNIT DOSE 48 IU
     Route: 065
     Dates: start: 20230822, end: 20230827
  104. GRANULOCYTE COLONY-STIMULATING FACTOR NOS [Concomitant]
     Active Substance: GRANULOCYTE COLONY-STIMULATING FACTOR NOS
     Indication: Product used for unknown indication
     Dosage: TIME INTERVAL: AS NECESSARY: UNIT DOSE 48 IU
     Route: 065
     Dates: start: 20231212, end: 20231212
  105. GRANULOCYTE COLONY-STIMULATING FACTOR NOS [Concomitant]
     Active Substance: GRANULOCYTE COLONY-STIMULATING FACTOR NOS
     Indication: Product used for unknown indication
     Dosage: UNIT DOSE 48 IU
     Route: 065
     Dates: start: 20221209, end: 20221214
  106. GRANULOCYTE COLONY-STIMULATING FACTOR NOS [Concomitant]
     Active Substance: GRANULOCYTE COLONY-STIMULATING FACTOR NOS
     Indication: Product used for unknown indication
     Dosage: UNIT DOSE 48 IU
     Route: 065
     Dates: start: 20230908, end: 20231016
  107. GRANULOCYTE COLONY-STIMULATING FACTOR NOS [Concomitant]
     Active Substance: GRANULOCYTE COLONY-STIMULATING FACTOR NOS
     Indication: Product used for unknown indication
     Dosage: UNIT DOSE 48 IU
     Route: 065
     Dates: start: 20221121, end: 20221121
  108. GRANULOCYTE COLONY-STIMULATING FACTOR NOS [Concomitant]
     Active Substance: GRANULOCYTE COLONY-STIMULATING FACTOR NOS
     Indication: Product used for unknown indication
     Dosage: UNIT DOSE 48 IU
     Route: 065
     Dates: start: 20230812, end: 20230821
  109. GRANULOCYTE COLONY-STIMULATING FACTOR NOS [Concomitant]
     Active Substance: GRANULOCYTE COLONY-STIMULATING FACTOR NOS
     Indication: Product used for unknown indication
     Dosage: UNIT DOSE 48 IU
     Route: 065
     Dates: start: 20231017, end: 20231106
  110. GRANULOCYTE COLONY-STIMULATING FACTOR NOS [Concomitant]
     Active Substance: GRANULOCYTE COLONY-STIMULATING FACTOR NOS
     Indication: Product used for unknown indication
     Dosage: UNIT DOSE 48 IU
     Route: 065
     Dates: start: 20230829, end: 20230907
  111. GRANULOCYTE COLONY-STIMULATING FACTOR NOS [Concomitant]
     Active Substance: GRANULOCYTE COLONY-STIMULATING FACTOR NOS
     Indication: Product used for unknown indication
     Dosage: LAST ADMIN DATE: 2023, UNIT DOSE 48 IU
     Route: 065
     Dates: start: 20231114
  112. GRANULOCYTE COLONY-STIMULATING FACTOR NOS [Concomitant]
     Active Substance: GRANULOCYTE COLONY-STIMULATING FACTOR NOS
     Indication: Product used for unknown indication
     Dosage: UNIT DOSE 48 IU
     Route: 065
     Dates: start: 20221215, end: 20230112
  113. GRANULOCYTE COLONY-STIMULATING FACTOR NOS [Concomitant]
     Active Substance: GRANULOCYTE COLONY-STIMULATING FACTOR NOS
     Indication: Product used for unknown indication
     Dosage: UNIT DOSE 48 IU
     Route: 065
     Dates: start: 20231107, end: 20231113
  114. GRANULOCYTE COLONY-STIMULATING FACTOR NOS [Concomitant]
     Active Substance: GRANULOCYTE COLONY-STIMULATING FACTOR NOS
     Indication: Product used for unknown indication
     Dosage: UNIT DOSE 48 IU
     Route: 065
     Dates: start: 20221025, end: 20221030
  115. GRANULOCYTE COLONY-STIMULATING FACTOR NOS [Concomitant]
     Active Substance: GRANULOCYTE COLONY-STIMULATING FACTOR NOS
     Indication: Product used for unknown indication
     Dosage: UNIT DOSE 48 IU
     Route: 065
     Dates: start: 20221031, end: 20221104
  116. GRANULOCYTE COLONY-STIMULATING FACTOR NOS [Concomitant]
     Active Substance: GRANULOCYTE COLONY-STIMULATING FACTOR NOS
     Indication: Product used for unknown indication
     Dosage: TIME INTERVAL: AS NECESSARY: UNIT DOSE 48 IU
     Route: 065
     Dates: start: 20230114, end: 20230811
  117. GRANULOCYTE COLONY-STIMULATING FACTOR NOS [Concomitant]
     Active Substance: GRANULOCYTE COLONY-STIMULATING FACTOR NOS
     Indication: Product used for unknown indication
     Dosage: UNIT DOSE 48 IU
     Route: 065
     Dates: start: 20221105, end: 20221110
  118. GRANULOCYTE COLONY-STIMULATING FACTOR NOS [Concomitant]
     Active Substance: GRANULOCYTE COLONY-STIMULATING FACTOR NOS
     Indication: Product used for unknown indication
     Dosage: FREQUENCY TEXT: WEEKLY
     Route: 065
  119. AMOXICILLIN\CLAVULANIC ACID [Concomitant]
     Active Substance: AMOXICILLIN\CLAVULANIC ACID
     Indication: Product used for unknown indication
     Dosage: 875/125 MG
     Route: 048
     Dates: start: 20231114, end: 20231128
  120. Halset [Concomitant]
     Indication: Product used for unknown indication
     Dosage: TIME INTERVAL: AS NECESSARY: 1 IU UNIT DOSE
     Route: 048
     Dates: start: 20230110, end: 20230110
  121. Novalgin [Concomitant]
     Indication: Product used for unknown indication
     Dosage: TIME INTERVAL: 0.33333333 DAYS: UNIT DOSE 1 IU
     Route: 048
     Dates: start: 20230828, end: 20230829
  122. CANDESARTAN CILEXETIL\HYDROCHLOROTHIAZIDE [Concomitant]
     Active Substance: CANDESARTAN CILEXETIL\HYDROCHLOROTHIAZIDE
     Indication: Product used for unknown indication
     Dosage: 16/12,5 MG
     Route: 048
     Dates: start: 20230824
  123. CANDESARTAN CILEXETIL\HYDROCHLOROTHIAZIDE [Concomitant]
     Active Substance: CANDESARTAN CILEXETIL\HYDROCHLOROTHIAZIDE
     Indication: Product used for unknown indication
     Dosage: 8/6.5 MG
     Route: 048
     Dates: start: 20230329, end: 20230331
  124. AMLODIPINE BESYLATE [Concomitant]
     Active Substance: AMLODIPINE BESYLATE
     Indication: Product used for unknown indication
     Route: 048
     Dates: start: 20230201
  125. DRONABINOL [Concomitant]
     Active Substance: DRONABINOL
     Indication: Product used for unknown indication
     Dosage: FREQUENCY TEXT: 3 TIMES DAILY?LAST ADMIN DATE: 2023?1.7 MG
     Route: 048
     Dates: start: 20230304
  126. DRONABINOL [Concomitant]
     Active Substance: DRONABINOL
     Indication: Product used for unknown indication
     Dosage: TIME INTERVAL: AS NECESSARY
     Route: 048
     Dates: start: 20231022
  127. AMOXICILLIN\CLAVULANATE POTASSIUM [Concomitant]
     Active Substance: AMOXICILLIN\CLAVULANATE POTASSIUM
     Indication: Product used for unknown indication
     Dosage: 815/125 MG
     Route: 048
     Dates: start: 20230209, end: 20230215
  128. AMOXICILLIN\CLAVULANATE POTASSIUM [Concomitant]
     Active Substance: AMOXICILLIN\CLAVULANATE POTASSIUM
     Indication: Product used for unknown indication
     Route: 048
     Dates: start: 20231115
  129. BUTYLSCOPOLAMINE BROMIDE [Concomitant]
     Active Substance: BUTYLSCOPOLAMINE BROMIDE
     Indication: Product used for unknown indication
     Route: 048
     Dates: start: 20230702, end: 20230702
  130. POLYETHYLENE GLYCOL 3350\POTASSIUM CHLORIDE\SODIUM BICARBONATE\SODIUM [Concomitant]
     Active Substance: POLYETHYLENE GLYCOL 3350\POTASSIUM CHLORIDE\SODIUM BICARBONATE\SODIUM CHLORIDE
     Indication: Product used for unknown indication
     Route: 065
     Dates: start: 20230201
  131. TRAMADOL [Concomitant]
     Active Substance: TRAMADOL
     Indication: Product used for unknown indication
     Route: 048
     Dates: start: 20230303, end: 20230303
  132. TRAMADOL [Concomitant]
     Active Substance: TRAMADOL
     Indication: Product used for unknown indication
     Route: 048
     Dates: start: 20230301, end: 20230302
  133. GUAR GUM [Concomitant]
     Active Substance: GUAR GUM
     Indication: Product used for unknown indication
     Route: 048
     Dates: start: 20230702, end: 20230702
  134. Guttalax [Concomitant]
     Indication: Product used for unknown indication
     Dosage: 1.3 ML
     Route: 048
     Dates: start: 20230823, end: 20230823
  135. KLYSMOL [Concomitant]
     Indication: Product used for unknown indication
     Route: 065
     Dates: start: 20230202, end: 20230202
  136. FOLIC ACID [Concomitant]
     Active Substance: FOLIC ACID
     Indication: Product used for unknown indication
     Route: 048
     Dates: start: 20230329, end: 20230418
  137. FOLIC ACID [Concomitant]
     Active Substance: FOLIC ACID
     Indication: Product used for unknown indication
     Route: 048
     Dates: start: 20221110, end: 20221207
  138. CANDESARTAN CILEXETIL AND HYDROCHLOROTHIAZIDE [Concomitant]
     Active Substance: CANDESARTAN CILEXETIL\HYDROCHLOROTHIAZIDE
     Indication: Product used for unknown indication
     Dosage: 16/12,5 MG
     Route: 048
     Dates: start: 20230725, end: 20230821
  139. CANDESARTAN CILEXETIL AND HYDROCHLOROTHIAZIDE [Concomitant]
     Active Substance: CANDESARTAN CILEXETIL\HYDROCHLOROTHIAZIDE
     Indication: Product used for unknown indication
     Route: 048
     Dates: start: 20230822, end: 20230823
  140. ELOMEL [Concomitant]
     Indication: Product used for unknown indication
     Route: 058
     Dates: start: 20230824, end: 20230829
  141. ELOMEL [Concomitant]
     Indication: Product used for unknown indication
     Route: 058
     Dates: start: 20230725, end: 20230726
  142. ELOMEL [Concomitant]
     Indication: Product used for unknown indication
     Route: 058
     Dates: start: 20230426, end: 20230429
  143. ELOMEL [Concomitant]
     Indication: Product used for unknown indication
     Route: 058
     Dates: start: 20230104, end: 20230107
  144. FILGRASTIM [Concomitant]
     Active Substance: FILGRASTIM
     Indication: Product used for unknown indication
     Dosage: 48 IU UNIT DOSE
     Route: 058
     Dates: start: 20230822, end: 20230827
  145. ELIQUIS [Concomitant]
     Active Substance: APIXABAN
     Indication: Product used for unknown indication
     Route: 048
     Dates: start: 20240419
  146. HYDROMORPHONE HYDROCHLORIDE [Concomitant]
     Active Substance: HYDROMORPHONE HYDROCHLORIDE
     Indication: Product used for unknown indication
     Dosage: HYDAL RETARD
     Route: 048
     Dates: start: 20230303, end: 20230303
  147. HYDROMORPHONE HYDROCHLORIDE [Concomitant]
     Active Substance: HYDROMORPHONE HYDROCHLORIDE
     Indication: Product used for unknown indication
     Dosage: HYDAL RETARD
     Route: 048
     Dates: start: 20230304

REACTIONS (20)
  - Thrombophlebitis [Recovered/Resolved]
  - Leukopenia [Recovered/Resolved]
  - Illness [Not Recovered/Not Resolved]
  - Leukopenia [Not Recovered/Not Resolved]
  - COVID-19 [Recovered/Resolved]
  - Decreased appetite [Not Recovered/Not Resolved]
  - Polyneuropathy [Recovered/Resolved]
  - Blood creatinine increased [Not Recovered/Not Resolved]
  - Arthralgia [Not Recovered/Not Resolved]
  - Oropharyngeal pain [Recovered/Resolved]
  - Vitamin D deficiency [Not Recovered/Not Resolved]
  - Nausea [Recovered/Resolved]
  - Leukopenia [Recovered/Resolved]
  - Leukopenia [Recovered/Resolved]
  - Leukopenia [Recovered/Resolved]
  - Leukocytosis [Recovered/Resolved]
  - Leukopenia [Recovered/Resolved]
  - Leukocytosis [Recovered/Resolved]
  - Leukopenia [Recovered/Resolved]
  - Leukopenia [Recovered/Resolved]

NARRATIVE: CASE EVENT DATE: 20221014
